FAERS Safety Report 6688164-0 (Version None)
Quarter: 2010Q2

REPORT INFORMATION
  Report Type: 
  Country: None (occurrence: None)
  Receive Date: 20100420
  Receipt Date: 20100415
  Transmission Date: 20101027
  Serious: Yes (Other)
  Sender: FDA-Public Use
  Company Number: US-B.I. PHARMACEUTICALS,INC./RIDGEFIELD-2010-BP-04357BP

PATIENT
  Age: 86 Year
  Sex: Male

DRUGS (2)
  1. COMBIVENT [Suspect]
     Indication: EMPHYSEMA
     Route: 055
     Dates: start: 20050101
  2. OXYGEN [Concomitant]
     Indication: EMPHYSEMA

REACTIONS (3)
  - DYSPNOEA [None]
  - PROSTATE CANCER [None]
  - PULMONARY CONGESTION [None]
